FAERS Safety Report 7128811-2 (Version None)
Quarter: 2010Q4

REPORT INFORMATION
  Report Type: 
  Country: None (occurrence: None)
  Receive Date: 20101130
  Receipt Date: 20101123
  Transmission Date: 20110411
  Serious: Yes (Life-Threatening, Hospitalization)
  Sender: FDA-Public Use
  Company Number: DE-ELI_LILLY_AND_COMPANY-DE201011005002

PATIENT
  Sex: Male
  Weight: 117 kg

DRUGS (4)
  1. BYETTA [Suspect]
     Indication: DIABETES MELLITUS
     Dosage: 5 UG, 2/D
     Route: 058
     Dates: start: 20100222, end: 20100301
  2. BYETTA [Suspect]
     Dosage: 10 UG, 2/D
     Route: 058
     Dates: start: 20100301, end: 20100910
  3. SIMVASTATIN [Concomitant]
     Indication: METABOLIC SYNDROME
     Dosage: 40 MG, UNK
     Route: 048
     Dates: start: 20100312
  4. XELEVIA [Concomitant]
     Indication: DIABETES MELLITUS
     Dosage: 100 MG, UNK
     Route: 048
     Dates: start: 20100222

REACTIONS (2)
  - DIARRHOEA [None]
  - RENAL FAILURE [None]
